FAERS Safety Report 12141288 (Version 2)
Quarter: 2016Q4

REPORT INFORMATION
  Report Type: Spontaneous
  Country: CA (occurrence: CA)
  Receive Date: 20160303
  Receipt Date: 20161028
  Transmission Date: 20170207
  Serious: Yes (Other)
  Sender: FDA-Public Use
  Company Number: CA-PFIZER INC-2016128297

PATIENT
  Age: 15 Year
  Sex: Female

DRUGS (10)
  1. AZITHROMYCIN ANHYDROUS. [Interacting]
     Active Substance: AZITHROMYCIN ANHYDROUS
     Dosage: UNK
     Route: 048
  2. LANSOPRAZOLE. [Interacting]
     Active Substance: LANSOPRAZOLE
     Dosage: UNK
     Route: 048
  3. VORICONAZOLE. [Interacting]
     Active Substance: VORICONAZOLE
     Indication: FUNGAL INFECTION
     Dosage: UNK
     Route: 048
  4. ATORVASTATIN CALCIUM. [Interacting]
     Active Substance: ATORVASTATIN CALCIUM
     Dosage: UNK
     Route: 048
  5. PREDNISONE. [Interacting]
     Active Substance: PREDNISONE
     Dosage: UNK
     Route: 048
  6. MYCOPHENOLATE MOFETIL. [Interacting]
     Active Substance: MYCOPHENOLATE MOFETIL
     Indication: PROPHYLAXIS AGAINST TRANSPLANT REJECTION
     Dosage: UNK
     Route: 048
  7. TACROLIMUS. [Interacting]
     Active Substance: TACROLIMUS
     Indication: PROPHYLAXIS AGAINST TRANSPLANT REJECTION
     Dosage: UNK
     Route: 048
  8. SULFAMETHOXAZOLE AND TRIMETHOPRIM [Interacting]
     Active Substance: SULFAMETHOXAZOLE\TRIMETHOPRIM
     Dosage: UNK
     Route: 048
  9. PANTOPRAZOLE [Suspect]
     Active Substance: PANTOPRAZOLE SODIUM
     Dosage: UNK
     Route: 048
  10. VORICONAZOLE. [Interacting]
     Active Substance: VORICONAZOLE
     Dosage: UNK
     Route: 048

REACTIONS (6)
  - Photosensitivity reaction [Unknown]
  - Drug interaction [Unknown]
  - Photodermatosis [Unknown]
  - Solar lentigo [Unknown]
  - Squamous cell carcinoma of skin [Unknown]
  - Actinic keratosis [Unknown]
